FAERS Safety Report 7755690-2 (Version None)
Quarter: 2011Q3

REPORT INFORMATION
  Report Type: 
  Country: None (occurrence: None)
  Receive Date: 20110916
  Receipt Date: 20110906
  Transmission Date: 20111222
  Serious: Yes (Other)
  Sender: FDA-Public Use
  Company Number: US-JNJFOC-20110904757

PATIENT
  Sex: Male

DRUGS (1)
  1. TYLOX [Suspect]
     Indication: PRODUCT USED FOR UNKNOWN INDICATION
     Route: 065

REACTIONS (3)
  - MENTAL STATUS CHANGES [None]
  - FEELING ABNORMAL [None]
  - SOMNOLENCE [None]
